FAERS Safety Report 17578682 (Version 1)
Quarter: 2020Q1

REPORT INFORMATION
  Report Type: Report from Study
  Country: US (occurrence: US)
  Receive Date: 20200324
  Receipt Date: 20200324
  Transmission Date: 20200409
  Serious: Yes (Death)
  Sender: FDA-Public Use
  Company Number: US-TEVA-2020-US-1208920

PATIENT
  Age: 70 Year

DRUGS (1)
  1. HYDROCODONE/PARACETAMIOL [Suspect]
     Active Substance: ACETAMINOPHEN\HYDROCODONE BITARTRATE
     Indication: OVERDOSE
     Dosage: 1-2 TABLETS EVERY 3 TO 4 HOURS AS NEEDED FOR PAIN.
     Route: 065

REACTIONS (3)
  - Overdose [Fatal]
  - Respiratory failure [Fatal]
  - Cardio-respiratory arrest [Fatal]
